FAERS Safety Report 7055140-8 (Version None)
Quarter: 2010Q4

REPORT INFORMATION
  Report Type: 
  Country: None (occurrence: None)
  Receive Date: 20101020
  Receipt Date: 20101020
  Transmission Date: 20110411
  Serious: Yes (Hospitalization)
  Sender: FDA-Public Use
  Company Number: None

PATIENT
  Sex: Female
  Weight: 53.7 kg

DRUGS (2)
  1. CISPLATIN [Suspect]
     Dosage: 118 MG
     Dates: end: 20100929
  2. TAXOL [Suspect]
     Dosage: 306 MG
     Dates: end: 20101005

REACTIONS (2)
  - PAIN [None]
  - URINARY TRACT INFECTION [None]
